FAERS Safety Report 11059848 (Version 1)
Quarter: 2015Q2

REPORT INFORMATION
  Report Type: Report from Study
  Country: BR (occurrence: BR)
  Receive Date: 20150423
  Receipt Date: 20150423
  Transmission Date: 20150821
  Serious: Yes (Death, Hospitalization)
  Sender: FDA-Public Use
  Company Number: BR-BAYER-2015-135993

PATIENT
  Age: 53 Year
  Sex: Male

DRUGS (1)
  1. NEXAVAR [Suspect]
     Active Substance: SORAFENIB
     Indication: HEPATOCELLULAR CARCINOMA
     Dosage: 400 MG, BID, FOR 12-15 DAYS
     Route: 048
     Dates: start: 2015

REACTIONS (5)
  - Hepatic cirrhosis [Fatal]
  - Hepatic failure [Fatal]
  - Hepatocellular carcinoma [Fatal]
  - Hospitalisation [Not Recovered/Not Resolved]
  - Hepatitis C [Fatal]

NARRATIVE: CASE EVENT DATE: 201503
